FAERS Safety Report 7915036-3 (Version None)
Quarter: 2011Q4

REPORT INFORMATION
  Report Type: 
  Country: None (occurrence: None)
  Receive Date: 20111115
  Receipt Date: 20111110
  Transmission Date: 20120403
  Serious: Yes (Other)
  Sender: FDA-Public Use
  Company Number: US-ROCHE-791159

PATIENT
  Sex: Female
  Weight: 49.94 kg

DRUGS (1)
  1. ACCUTANE [Suspect]
     Indication: ACNE
     Route: 065
     Dates: start: 19820101, end: 19870101

REACTIONS (6)
  - COLITIS ULCERATIVE [None]
  - OSTEOPENIA [None]
  - STRESS [None]
  - DIVERTICULITIS [None]
  - INTESTINAL HAEMORRHAGE [None]
  - ANAL FISSURE [None]
